FAERS Safety Report 25156841 (Version 1)
Quarter: 2025Q2

REPORT INFORMATION
  Report Type: Report from Study
  Country: US (occurrence: US)
  Receive Date: 20250403
  Receipt Date: 20250403
  Transmission Date: 20250717
  Serious: Yes (Hospitalization)
  Sender: EISAI
  Company Number: US-Eisai-EC-2025-186842

PATIENT
  Age: 71 Year
  Sex: Male
  Weight: 109.31 kg

DRUGS (33)
  1. LENVIMA [Suspect]
     Active Substance: LENVATINIB
     Indication: Renal cancer
     Dosage: PAUSED DUE TO DRUG INTERACTION
     Dates: start: 20250208, end: 202502
  2. LENVIMA [Suspect]
     Active Substance: LENVATINIB
     Dates: start: 202502
  3. TYLENOL [Concomitant]
     Active Substance: ACETAMINOPHEN
  4. VITAMINS [Concomitant]
     Active Substance: VITAMINS
  5. EVEROLIMUS [Concomitant]
     Active Substance: EVEROLIMUS
  6. FLOVENT HFA [Concomitant]
     Active Substance: FLUTICASONE PROPIONATE
  7. HYDROXYZINE [Concomitant]
     Active Substance: HYDROXYZINE HYDROCHLORIDE
  8. LISINOPRIL [Concomitant]
     Active Substance: LISINOPRIL
  9. LOMOTIL [Concomitant]
     Active Substance: ATROPINE SULFATE\DIPHENOXYLATE HYDROCHLORIDE
  10. LOPERAMIDE [Concomitant]
     Active Substance: LOPERAMIDE
  11. PEPCID AC [Concomitant]
     Active Substance: FAMOTIDINE
  12. PROCHLORPERAZINE [Concomitant]
     Active Substance: PROCHLORPERAZINE
  13. SERTRALINE [Concomitant]
     Active Substance: SERTRALINE HYDROCHLORIDE
  14. SYNTHROID [Concomitant]
     Active Substance: LEVOTHYROXINE SODIUM
  15. VENTOLIN HFA [Concomitant]
     Active Substance: ALBUTEROL SULFATE
  16. XANAX [Concomitant]
     Active Substance: ALPRAZOLAM
  17. ZETIA [Concomitant]
     Active Substance: EZETIMIBE
  18. XGEVA [Concomitant]
     Active Substance: DENOSUMAB
  19. ZYRTEC [Concomitant]
     Active Substance: CETIRIZINE HYDROCHLORIDE
  20. HYDROCORTISONE [Concomitant]
     Active Substance: HYDROCORTISONE
  21. MILK OF MAGNESIA [Concomitant]
     Active Substance: MAGNESIUM HYDROXIDE
  22. TRIAMCINOLONE [Concomitant]
     Active Substance: TRIAMCINOLONE
  23. ACETAMINOPHEN [Concomitant]
     Active Substance: ACETAMINOPHEN
  24. VITAMINS [Concomitant]
     Active Substance: VITAMINS
  25. NYSTATIN MOUTH SUSPENSION [Concomitant]
  26. FENTANYL [Concomitant]
     Active Substance: FENTANYL
  27. OXYCODONE [Concomitant]
     Active Substance: OXYCODONE
  28. PANTOPRAZOLE [Concomitant]
     Active Substance: PANTOPRAZOLE
  29. ALOE VERA LEAF [Concomitant]
     Active Substance: ALOE VERA LEAF
  30. VENTOLIN [Concomitant]
     Active Substance: ALBUTEROL SULFATE
  31. ZOFRAN [Concomitant]
     Active Substance: ONDANSETRON HYDROCHLORIDE
  32. ACETAMINOPHEN\OXYCODONE HYDROCHLORIDE [Concomitant]
     Active Substance: ACETAMINOPHEN\OXYCODONE HYDROCHLORIDE
  33. MAGNESIUM CITRATE [Concomitant]
     Active Substance: MAGNESIUM CITRATE

REACTIONS (14)
  - Faecaloma [Recovering/Resolving]
  - Dermatitis acneiform [Recovering/Resolving]
  - Blood lactic acid increased [Recovering/Resolving]
  - White blood cell count increased [Recovering/Resolving]
  - Candida infection [Recovering/Resolving]
  - Weight decreased [Not Recovered/Not Resolved]
  - Diarrhoea [Recovered/Resolved]
  - Dehydration [Recovered/Resolved]
  - Stomatitis [Unknown]
  - Rash pustular [Not Recovered/Not Resolved]
  - Rash pruritic [Not Recovered/Not Resolved]
  - Genital blister [Not Recovered/Not Resolved]
  - Constipation [Recovered/Resolved]
  - Nausea [Unknown]

NARRATIVE: CASE EVENT DATE: 20250101
